FAERS Safety Report 6402318-X (Version None)
Quarter: 2009Q4

REPORT INFORMATION
  Report Type: 
  Country: None (occurrence: None)
  Receive Date: 20091015
  Receipt Date: 20091014
  Transmission Date: 20100525
  Serious: Yes (Death, Hospitalization)
  Sender: FDA-Public Use
  Company Number: PHHO2009TW10035

PATIENT
  Sex: Male
  Weight: 53 kg

DRUGS (3)
  1. RAD 666 RAD+TAB+CMAS [Suspect]
     Indication: PANCREATIC NEUROENDOCRINE TUMOUR
     Dosage: BROKEN
     Route: 048
     Dates: start: 20090114, end: 20090629
  2. NOVOMIX [Concomitant]
     Indication: TYPE 2 DIABETES MELLITUS
  3. TAKEPRON [Concomitant]
     Indication: PEPTIC ULCER

REACTIONS (5)
  - ACUTE HEPATIC FAILURE [None]
  - HEPATIC ENCEPHALOPATHY [None]
  - HEPATIC NECROSIS [None]
  - HEPATITIS B [None]
  - LIVER FUNCTION TEST ABNORMAL [None]
